FAERS Safety Report 14422005 (Version 1)
Quarter: 2018Q1

REPORT INFORMATION
  Report Type: Spontaneous
  Country: US (occurrence: US)
  Receive Date: 20180123
  Receipt Date: 20180123
  Transmission Date: 20180509
  Serious: No
  Sender: FDA-Public Use
  Company Number: US-ENDO PHARMACEUTICALS INC-2017-004251

PATIENT
  Sex: Female

DRUGS (1)
  1. OPANA ER [Suspect]
     Active Substance: OXYMORPHONE HYDROCHLORIDE
     Indication: PAIN
     Dosage: 5 MG, ONCE DAILY
     Route: 065

REACTIONS (5)
  - Gastrointestinal disorder [Unknown]
  - Anxiety [Unknown]
  - Unevaluable event [Unknown]
  - Withdrawal syndrome [Unknown]
  - Emotional disorder [Unknown]
